FAERS Safety Report 10231070 (Version 1)
Quarter: 2014Q2

REPORT INFORMATION
  Report Type: Spontaneous
  Country: US (occurrence: US)
  Receive Date: 20140611
  Receipt Date: 20140611
  Transmission Date: 20141212
  Serious: No
  Sender: FDA-Public Use
  Company Number: US-PFIZER INC-2014154153

PATIENT
  Age: 59 Year
  Sex: Male
  Weight: 76.66 kg

DRUGS (5)
  1. CIPROFLOXACIN [Suspect]
     Indication: ENTERITIS
     Dosage: 500 MG, 2X/DAY
     Route: 048
     Dates: start: 201404
  2. CIPROFLOXACIN [Suspect]
     Indication: HEPATITIS C
  3. CIPROFLOXACIN [Suspect]
     Indication: HEPATIC CIRRHOSIS
  4. FLAGYL [Suspect]
     Dosage: UNK
     Dates: start: 20140410, end: 20140519
  5. LIQUID LACTULOSE [Concomitant]
     Dosage: UNK, DAILY

REACTIONS (3)
  - Off label use [Unknown]
  - Hypoaesthesia [Unknown]
  - Weight decreased [Unknown]
